FAERS Safety Report 8563189 (Version 6)
Quarter: 2012Q4

REPORT INFORMATION
  Report Type: 
  Country: CA (occurrence: CA)
  Receive Date: 20120515
  Receipt Date: 20121009
  Transmission Date: 20130627
  Serious: Yes (Other)
  Sender: FDA-Public Use
  Company Number: CA-ROCHE-1067517

PATIENT
  Age: 51 None
  Sex: Female

DRUGS (8)
  1. XOLAIR [Suspect]
     Indication: ASTHMA
     Route: 058
     Dates: start: 20111213
  2. ADVAIR [Concomitant]
  3. SPIRIVA [Concomitant]
  4. SINGULAIR [Concomitant]
  5. VENTOLIN [Concomitant]
  6. ASA [Concomitant]
  7. RAMIPRIL [Concomitant]
  8. AMLODIPIN [Concomitant]

REACTIONS (8)
  - Carpal tunnel syndrome [Unknown]
  - Blood pressure decreased [Unknown]
  - Injection site haemorrhage [Unknown]
  - Headache [Not Recovered/Not Resolved]
  - Injection site pain [Unknown]
  - Dyspnoea [Recovered/Resolved]
  - Heart rate irregular [Unknown]
  - Wheezing [Unknown]
